FAERS Safety Report 7296853-2 (Version None)
Quarter: 2011Q1

REPORT INFORMATION
  Report Type: 
  Country: None (occurrence: None)
  Receive Date: 20110216
  Receipt Date: 20110208
  Transmission Date: 20110831
  Serious: Yes (Hospitalization)
  Sender: FDA-Public Use
  Company Number: CA-JNJFOC-20110202832

PATIENT
  Sex: Male
  Weight: 78 kg

DRUGS (5)
  1. PURINETHOL [Concomitant]
  2. REMICADE [Suspect]
     Indication: CROHN'S DISEASE
     Route: 042
  3. VIT D [Concomitant]
     Route: 065
  4. EURO FOLIC [Concomitant]
  5. PROPECIA [Concomitant]

REACTIONS (1)
  - TRANSIENT ISCHAEMIC ATTACK [None]
